FAERS Safety Report 14301582 (Version 1)
Quarter: 2017Q4

REPORT INFORMATION
  Report Type: Spontaneous
  Country: US (occurrence: US)
  Receive Date: 20171218
  Receipt Date: 20171218
  Transmission Date: 20180321
  Serious: Yes (Other)
  Sender: FDA-Public Use
  Company Number: None

PATIENT
  Age: 71 Year
  Sex: Female
  Weight: 52.65 kg

DRUGS (8)
  1. LISINAPRIL [Concomitant]
  2. METFORMIN [Concomitant]
     Active Substance: METFORMIN HYDROCHLORIDE
  3. 81 MILL ASPIRIN [Concomitant]
  4. EFFIENT [Suspect]
     Active Substance: PRASUGREL HYDROCHLORIDE
     Indication: THROMBOSIS PROPHYLAXIS
     Route: 048
     Dates: start: 20170318, end: 20171210
  5. EFFIENT [Suspect]
     Active Substance: PRASUGREL HYDROCHLORIDE
     Indication: CORONARY ARTERIAL STENT INSERTION
     Route: 048
     Dates: start: 20170318, end: 20171210
  6. GLIPIZIDE. [Concomitant]
     Active Substance: GLIPIZIDE
  7. EFFIENT [Suspect]
     Active Substance: PRASUGREL HYDROCHLORIDE
     Indication: POSTOPERATIVE CARE
     Route: 048
     Dates: start: 20170318, end: 20171210
  8. AMLODIPINE [Concomitant]
     Active Substance: AMLODIPINE BESYLATE

REACTIONS (4)
  - Back pain [None]
  - Mental disorder [None]
  - Asthenia [None]
  - Adverse drug reaction [None]

NARRATIVE: CASE EVENT DATE: 20170601
